FAERS Safety Report 9659145 (Version 2)
Quarter: 2013Q4

REPORT INFORMATION
  Report Type: Spontaneous
  Country: JP (occurrence: JP)
  Receive Date: 20131031
  Receipt Date: 20131031
  Transmission Date: 20140711
  Serious: Yes (Death, Other)
  Sender: FDA-Public Use
  Company Number: PHHY2013JP117275

PATIENT
  Age: 23 Year
  Sex: Female

DRUGS (7)
  1. ETOPOSIDE SANDOZ [Suspect]
     Indication: DESMOPLASTIC SMALL ROUND CELL TUMOUR
     Dosage: 130 MG/M2, DAILY
  2. DOXORUBICIN HYDROCHLORIDE SANDOZ [Suspect]
     Indication: DESMOPLASTIC SMALL ROUND CELL TUMOUR
     Dosage: 50 MG/M2, DAILY
  3. VINCRISTINE SULFATE [Suspect]
     Indication: DESMOPLASTIC SMALL ROUND CELL TUMOUR
     Dosage: 2 MG/M2, DAILY
  4. IFOSFAMIDE [Suspect]
     Indication: DESMOPLASTIC SMALL ROUND CELL TUMOUR
     Dosage: 2500 MG/M2, DAILY
  5. GEMCITABINE [Suspect]
     Indication: DESMOPLASTIC SMALL ROUND CELL TUMOUR
     Dosage: 675 MG/M2, DAILY
  6. DOCETAXEL [Suspect]
     Indication: DESMOPLASTIC SMALL ROUND CELL TUMOUR
     Dosage: 100 MG/M2, DAILY
  7. CYCLOPHOSPHAMIDE [Suspect]
     Indication: DESMOPLASTIC SMALL ROUND CELL TUMOUR
     Dosage: 1600 MG/M2, DAILY

REACTIONS (5)
  - Death [Fatal]
  - Neoplasm recurrence [Unknown]
  - Desmoplastic small round cell tumour [Unknown]
  - Malignant neoplasm progression [Unknown]
  - Neutrophil count decreased [Unknown]
